FAERS Safety Report 13698920 (Version 1)
Quarter: 2017Q2

REPORT INFORMATION
  Report Type: Report from Study
  Country: None (occurrence: US)
  Receive Date: 20170628
  Receipt Date: 20170628
  Transmission Date: 20170830
  Serious: Yes (Hospitalization, Other)
  Sender: FDA-Public Use
  Company Number: US-ABBVIE-17K-163-1945768-00

PATIENT
  Age: 31 Year
  Sex: Female

DRUGS (2)
  1. HUMIRA [Suspect]
     Active Substance: ADALIMUMAB
     Indication: CROHN^S DISEASE
     Dosage: LOADING DOSE
     Route: 058
     Dates: start: 20170218, end: 20170218
  2. HUMIRA [Suspect]
     Active Substance: ADALIMUMAB
     Route: 058
     Dates: start: 201704, end: 201704

REACTIONS (19)
  - Pelvic fluid collection [Recovered/Resolved]
  - Abdominal distension [Recovered/Resolved]
  - Hepatic infarction [Unknown]
  - Hepatic lesion [Unknown]
  - Computerised tomogram liver abnormal [Unknown]
  - Ovarian cyst [Unknown]
  - Dyspnoea [Recovered/Resolved]
  - Back pain [Recovered/Resolved]
  - Colitis [Recovered/Resolved]
  - Gastrointestinal necrosis [Not Recovered/Not Resolved]
  - Appendicectomy [Recovering/Resolving]
  - Colitis [Recovered/Resolved]
  - Abdominal pain [Recovered/Resolved]
  - Colonic abscess [Recovered/Resolved]
  - Intestinal obstruction [Recovered/Resolved]
  - Pyrexia [Recovered/Resolved]
  - Mucosal ulceration [Not Recovered/Not Resolved]
  - Colonic abscess [Recovered/Resolved]
  - Chills [Recovered/Resolved]

NARRATIVE: CASE EVENT DATE: 20170220
